FAERS Safety Report 7755301-6 (Version None)
Quarter: 2011Q3

REPORT INFORMATION
  Report Type: 
  Country: None (occurrence: None)
  Receive Date: 20110914
  Receipt Date: 20110905
  Transmission Date: 20111222
  Serious: Yes (Other)
  Sender: FDA-Public Use
  Company Number: 962193

PATIENT
  Age: 15 Month
  Sex: Male
  Weight: 10.4 kg

DRUGS (14)
  1. FUROSEMIDE [Suspect]
     Indication: CARDIAC DISORDER
     Dosage: 5 MG MILLIGRAM(S) ORAL
     Route: 048
     Dates: start: 20100305, end: 20110528
  2. CODEINE SULFATE [Concomitant]
  3. GENTAMICIN [Concomitant]
  4. ASPIRIN [Concomitant]
  5. LACTULOSE [Concomitant]
  6. VANCOMYCIN HYCHLORIDE [Suspect]
     Indication: ENDOCARDITIS
     Dosage: 550 MG MILLIGRAM(S), INTRAVENOUS
     Route: 042
     Dates: start: 20110502, end: 20110526
  7. SPIRONOLACTONE [Concomitant]
  8. CEFUROXIME [Concomitant]
  9. (MILRINONE) [Concomitant]
  10. HEPARIN [Concomitant]
  11. NYSTATIN [Concomitant]
  12. CEFOTAXIME [Suspect]
     Indication: ENDOCARDITIS
     Dosage: 500 MG MILLIGRAM(S) INTRAVENOUS (NOT OTHERWISE SPECIFIED)
     Route: 042
     Dates: start: 20110502, end: 20110526
  13. RIFAMPICIN [Suspect]
     Indication: ENDOCARDITIS
     Dosage: 68 MG MILLIGRAM(S)  ORAL
     Route: 048
     Dates: start: 20110502, end: 20110526
  14. ACETAMINOPHEN [Concomitant]

REACTIONS (3)
  - DRUG INTERACTION [None]
  - RASH ERYTHEMATOUS [None]
  - PAPULE [None]
